FAERS Safety Report 24555699 (Version 2)
Quarter: 2024Q4

REPORT INFORMATION
  Report Type: Spontaneous
  Country: AU (occurrence: AU)
  Receive Date: 20241028
  Receipt Date: 20241217
  Transmission Date: 20250115
  Serious: Yes (Other)
  Sender: SANOFI AVENTIS
  Company Number: AU-SA-2024SA304562

PATIENT
  Sex: Female

DRUGS (2)
  1. IRBESARTAN [Suspect]
     Active Substance: IRBESARTAN
     Dosage: UNK
  2. IRBESARTAN [Suspect]
     Active Substance: IRBESARTAN
     Dosage: UNK

REACTIONS (2)
  - Syncope [Unknown]
  - Blood pressure increased [Unknown]

NARRATIVE: CASE EVENT DATE: 20240101
